FAERS Safety Report 7056118-0 (Version None)
Quarter: 2010Q4

REPORT INFORMATION
  Report Type: 
  Country: None (occurrence: None)
  Receive Date: 20101021
  Receipt Date: 20101015
  Transmission Date: 20110411
  Serious: Yes (Life-Threatening, Hospitalization)
  Sender: FDA-Public Use
  Company Number: PHHY2010JP69336

PATIENT
  Sex: Female
  Weight: 61 kg

DRUGS (6)
  1. DIOVAN [Suspect]
     Dosage: 40 MG, QD
     Route: 048
     Dates: start: 20080125, end: 20081203
  2. DIOVAN [Suspect]
     Dosage: 20 MG, BID
     Route: 048
     Dates: start: 20081204
  3. AMLODIPINE BESYLATE [Concomitant]
     Indication: HYPERTENSION
     Dosage: 2.5 MG, UNK
     Route: 048
     Dates: start: 20080212, end: 20100307
  4. LIVALO KOWA [Concomitant]
     Dosage: 2 MG, UNK
     Route: 048
     Dates: start: 20071130
  5. GLYBURIDE [Concomitant]
     Dosage: 1.25 MG, UNK
     Route: 048
     Dates: start: 20071130
  6. ACTOS [Concomitant]
     Dosage: 15 MG, UNK
     Route: 048
     Dates: start: 20071130, end: 20100413

REACTIONS (2)
  - ANGINA PECTORIS [None]
  - BREAST CANCER [None]
